FAERS Safety Report 6694924-2 (Version None)
Quarter: 2010Q2

REPORT INFORMATION
  Report Type: 
  Country: None (occurrence: None)
  Receive Date: 20100423
  Receipt Date: 20100412
  Transmission Date: 20101027
  Serious: Yes (Hospitalization, Disabling)
  Sender: FDA-Public Use
  Company Number: US-ELI_LILLY_AND_COMPANY-US200911005506

PATIENT
  Sex: Female
  Weight: 62.132 kg

DRUGS (9)
  1. ZYPREXA [Suspect]
     Indication: BIPOLAR DISORDER
     Dosage: 10 MG, DAILY (1/D)
     Dates: start: 19980101, end: 20090310
  2. ZYPREXA [Suspect]
     Dosage: 5 MG, UNK
     Dates: start: 20090311, end: 20090413
  3. ZYPREXA [Suspect]
     Dosage: 10 MG, EACH EVENING
     Dates: start: 20090513, end: 20090617
  4. ARIPIPRAZOLE [Concomitant]
     Dosage: 10 MG, DAILY (1/D)
     Dates: start: 20090101
  5. DIVALPROEX SODIUM [Concomitant]
     Dosage: 250 MG, 2/D
     Dates: start: 20080602, end: 20090201
  6. PROZAC [Concomitant]
     Dosage: 20 MG, UNK
     Dates: start: 20030101, end: 20030101
  7. CLONAZEPAM [Concomitant]
     Dosage: 0.5 MG, DAILY (1/D)
     Route: 048
     Dates: end: 20080602
  8. TRAZODONE HCL [Concomitant]
     Dosage: 50 MG/KG, DAILY (1/D)
     Route: 048
  9. VENLAFAXINE HCL [Concomitant]
     Dosage: 75 MG, 2/D
     Dates: start: 20090619

REACTIONS (13)
  - BLOOD CHOLESTEROL INCREASED [None]
  - CELLULITIS [None]
  - CHOLELITHIASIS [None]
  - GASTROINTESTINAL HAEMORRHAGE [None]
  - MENORRHAGIA [None]
  - METABOLIC DISORDER [None]
  - NEUROPATHY PERIPHERAL [None]
  - PLATELET COUNT INCREASED [None]
  - POLYCYSTIC OVARIES [None]
  - SKIN HAEMORRHAGE [None]
  - STRESS [None]
  - TYPE 2 DIABETES MELLITUS [None]
  - WEIGHT INCREASED [None]
